FAERS Safety Report 6721655-2 (Version None)
Quarter: 2010Q2

REPORT INFORMATION
  Report Type: 
  Country: None (occurrence: None)
  Receive Date: 20100512
  Receipt Date: 20100430
  Transmission Date: 20101027
  Serious: Yes (Hospitalization)
  Sender: FDA-Public Use
  Company Number: US-ELI_LILLY_AND_COMPANY-US201002005413

PATIENT
  Sex: Female
  Weight: 82.993 kg

DRUGS (8)
  1. GEMCITABINE HCL [Suspect]
     Indication: BREAST CANCER METASTATIC
     Dosage: 2500 MG/M2, OTHER
     Route: 042
     Dates: start: 20090604, end: 20100114
  2. BEVACIZUMAB [Suspect]
     Indication: BREAST CANCER METASTATIC
     Dosage: 10 MG/KG, OTHER
     Route: 042
     Dates: start: 20090604, end: 20100114
  3. ATIVAN [Concomitant]
     Indication: INSOMNIA
     Dates: start: 20090813
  4. HYDROCHLOROTHIAZIDE [Concomitant]
     Indication: HYPERTENSION
     Dosage: 50 MG, DAILY (1/D)
     Dates: start: 20090813
  5. LEXAPRO [Concomitant]
     Indication: DEPRESSION
     Dosage: 10 MG, DAILY (1/D)
     Dates: start: 20071205
  6. NORVASC [Concomitant]
     Indication: HYPERTENSION
     Dates: start: 20100121
  7. VICODIN [Concomitant]
     Indication: PAIN
     Dates: start: 20090723
  8. PREDNISONE [Concomitant]
     Indication: RENAL DISORDER
     Dosage: 80 MG, DAILY (1/D)
     Dates: start: 20100211

REACTIONS (1)
  - HAEMOLYTIC URAEMIC SYNDROME [None]
